FAERS Safety Report 5378545-X (Version None)
Quarter: 2007Q2

REPORT INFORMATION
  Report Type: 
  Country: None (occurrence: None)
  Receive Date: 20070530
  Receipt Date: 20070226
  Transmission Date: 20071010
  Serious: No
  Sender: FDA-Public Use
  Company Number: 2007PV030728

PATIENT
  Age: 43 Year
  Sex: Female

DRUGS (2)
  1. BYETTA [Suspect]
     Indication: DRUG USE FOR UNKNOWN INDICATION
     Dosage: 10 MCG;SC   5 MCG;SC
     Route: 058
     Dates: start: 20061005, end: 20061101
  2. BYETTA [Suspect]
     Indication: DRUG USE FOR UNKNOWN INDICATION
     Dosage: 10 MCG;SC   5 MCG;SC
     Route: 058
     Dates: start: 20061105

REACTIONS (2)
  - URTICARIA [None]
  - WEIGHT DECREASED [None]
